FAERS Safety Report 5556656-3 (Version None)
Quarter: 2007Q4

REPORT INFORMATION
  Report Type: 
  Country: None (occurrence: None)
  Receive Date: 20071213
  Receipt Date: 20070909
  Transmission Date: 20080405
  Serious: No
  Sender: FDA-Public Use
  Company Number: US-AMGEN-KDL242655

PATIENT
  Sex: Female

DRUGS (3)
  1. ENBREL [Suspect]
     Indication: RHEUMATOID ARTHRITIS
     Route: 058
     Dates: start: 20070412
  2. METHOTREXATE [Concomitant]
     Dates: start: 20000101
  3. PLAQUENIL [Concomitant]
     Dates: start: 20020101

REACTIONS (1)
  - NASOPHARYNGITIS [None]
